FAERS Safety Report 5494055-3 (Version None)
Quarter: 2007Q4

REPORT INFORMATION
  Report Type: 
  Country: None (occurrence: None)
  Receive Date: 20071023
  Receipt Date: 20071011
  Transmission Date: 20080405
  Serious: Yes (Other)
  Sender: FDA-Public Use
  Company Number: NO-PFIZER INC-2007086933

PATIENT
  Sex: Male

DRUGS (2)
  1. ALDACTONE [Suspect]
     Indication: HYPERTENSION
     Dates: start: 19970101, end: 19990101
  2. ALDACTONE [Suspect]
     Indication: HYPERALDOSTERONISM

REACTIONS (7)
  - DIZZINESS [None]
  - DYSPEPSIA [None]
  - ERECTILE DYSFUNCTION [None]
  - GYNAECOMASTIA [None]
  - MENIERE'S DISEASE [None]
  - NAUSEA [None]
  - VISUAL ACUITY REDUCED [None]
